FAERS Safety Report 22381244 (Version 2)
Quarter: 2025Q3

REPORT INFORMATION
  Report Type: Report from Study
  Country: US (occurrence: US)
  Receive Date: 20230530
  Receipt Date: 20250715
  Transmission Date: 20251021
  Serious: Yes (Other)
  Sender: NOVARTIS
  Company Number: US-002147023-NVSC2023US118918

PATIENT
  Sex: Male

DRUGS (1)
  1. COSENTYX [Suspect]
     Active Substance: SECUKINUMAB
     Indication: Psoriasis
     Dosage: 300 MG, QW
     Route: 058

REACTIONS (6)
  - Anaphylactic reaction [Recovering/Resolving]
  - Hypersensitivity [Recovering/Resolving]
  - Wheezing [Unknown]
  - Feeling hot [Unknown]
  - Ocular hyperaemia [Unknown]
  - Urticaria [Unknown]
